FAERS Safety Report 8893875 (Version 1)
Quarter: 2012Q4

REPORT INFORMATION
  Report Type: 
  Country: US (occurrence: US)
  Receive Date: 20121108
  Receipt Date: 20121108
  Transmission Date: 20130627
  Serious: Yes (Death)
  Sender: FDA-Public Use
  Company Number: US-TEVA-359663USA

PATIENT
  Age: 64 Year
  Sex: Female

DRUGS (10)
  1. TREANDA [Suspect]
     Dates: start: 201205, end: 201208
  2. BORTEZOMIB [Concomitant]
     Dates: start: 200810, end: 200811
  3. BORTEZOMIB [Concomitant]
     Dates: start: 201012, end: 201106
  4. REVLIMID [Concomitant]
     Dates: start: 201012, end: 201106
  5. ALKERAN [Concomitant]
     Dates: start: 201012, end: 201106
  6. ALKERAN [Concomitant]
     Dates: start: 201106, end: 201112
  7. THALIDOMIDE [Concomitant]
     Dates: start: 201012, end: 201106
  8. THALIDOMIDE [Concomitant]
     Dates: start: 201106, end: 201112
  9. CYTOXAN [Concomitant]
     Dates: start: 201112, end: 201205
  10. ZOMETA [Concomitant]
     Dates: start: 200810, end: 201207

REACTIONS (2)
  - Plasma cell myeloma [Fatal]
  - Disease progression [Fatal]
